FAERS Safety Report 6692475-2 (Version None)
Quarter: 2010Q2

REPORT INFORMATION
  Report Type: 
  Country: None (occurrence: None)
  Receive Date: 20100422
  Receipt Date: 20100419
  Transmission Date: 20101027
  Serious: Yes (Life-Threatening)
  Sender: FDA-Public Use
  Company Number: A0855561A

PATIENT
  Sex: Male
  Weight: 90 kg

DRUGS (6)
  1. ZANAMIVIR [Suspect]
     Indication: H1N1 INFLUENZA
     Route: 042
     Dates: start: 20091119
  2. CEFTRIAXONE [Concomitant]
     Indication: PNEUMONIA
     Dosage: 2G PER DAY
     Route: 042
     Dates: start: 20091110, end: 20091120
  3. MOXIFLOXACIN HCL [Concomitant]
     Indication: PNEUMONIA
     Dosage: 400MG PER DAY
     Route: 042
     Dates: start: 20091110, end: 20091120
  4. RANITIDINE [Concomitant]
     Indication: PROPHYLAXIS
     Dosage: 150MG TWICE PER DAY
     Route: 048
     Dates: start: 20091110, end: 20091121
  5. FUROSEMIDE [Concomitant]
     Dosage: 40MG TWICE PER DAY
     Route: 042
     Dates: start: 20091112, end: 20100103
  6. TAMIFLU [Concomitant]

REACTIONS (2)
  - RASH MORBILLIFORM [None]
  - RENAL FAILURE ACUTE [None]
